FAERS Safety Report 7705211-5 (Version None)
Quarter: 2011Q3

REPORT INFORMATION
  Report Type: 
  Country: None (occurrence: None)
  Receive Date: 20110818
  Receipt Date: 20110802
  Transmission Date: 20111222
  Serious: Yes (Hospitalization, Disabling, Other)
  Sender: FDA-Public Use
  Company Number: 2010AL002812

PATIENT
  Sex: Female
  Weight: 64.8644 kg

DRUGS (42)
  1. CALCIUM CARBONATE [Concomitant]
  2. ASPIRIN [Concomitant]
  3. PERCOCET [Concomitant]
  4. NASONEX [Concomitant]
  5. AMOXICILLIN [Concomitant]
  6. AMANTADINE HCL [Concomitant]
  7. GLUCOSAMINE CHONDROITIN [Concomitant]
  8. OMEPRAZOLE [Concomitant]
  9. TETRABENAZINE [Concomitant]
  10. BOTOX [Concomitant]
  11. CLONAZEPAM [Concomitant]
  12. ALLEGRA [Concomitant]
  13. LIDOCAINE [Concomitant]
  14. CITALOPRAM [Concomitant]
  15. METOCLOPRAMIDE [Suspect]
     Indication: VOMITING
     Dosage: 10 MG; TID; PO
     Route: 048
     Dates: start: 20050126, end: 20070208
  16. DARVOCET [Concomitant]
  17. METHOCARBAMOL [Concomitant]
  18. KENALOG [Concomitant]
  19. GLYBURIDE [Concomitant]
  20. BACLOFEN [Concomitant]
  21. MONOPRIL [Concomitant]
  22. LIPITOR [Concomitant]
  23. HYDROCODONE BITARTRATE [Concomitant]
  24. ALTOPREV [Concomitant]
  25. LORATADINE [Concomitant]
  26. VYTORIN [Concomitant]
  27. STRILEPTAL [Concomitant]
  28. SIMAVASTATIN [Concomitant]
  29. VICODIN [Concomitant]
  30. OXYCODONE HCL [Concomitant]
  31. TRIHEXYPHENIDYL HCL [Concomitant]
  32. TRIHEXYPHENIDYL HCL [Interacting]
  33. ULTRAM [Concomitant]
  34. HYDROCHLOROTHIAZIDE [Concomitant]
  35. FLEXERIL [Concomitant]
  36. IBUPROFEN [Concomitant]
  37. ATENOLOL [Concomitant]
  38. VITAMIN E [Concomitant]
  39. MS CONTIN [Concomitant]
  40. BENADRYL [Concomitant]
  41. SCOPOLAMINE [Concomitant]
  42. XANAX [Concomitant]

REACTIONS (71)
  - ANXIETY [None]
  - BLOOD GLUCOSE DECREASED [None]
  - RESPIRATORY DISORDER [None]
  - FEELING ABNORMAL [None]
  - ASTHENIA [None]
  - PAIN IN EXTREMITY [None]
  - UPPER RESPIRATORY TRACT INFECTION [None]
  - DYSARTHRIA [None]
  - CAROTID BRUIT [None]
  - MENTAL DISORDER [None]
  - MOVEMENT DISORDER [None]
  - GAIT DISTURBANCE [None]
  - SENSORY DISTURBANCE [None]
  - DEPRESSION [None]
  - BRADYKINESIA [None]
  - NECK PAIN [None]
  - BACK PAIN [None]
  - FALL [None]
  - CONFUSIONAL STATE [None]
  - AKATHISIA [None]
  - NERVOUS SYSTEM DISORDER [None]
  - EXTRAPYRAMIDAL DISORDER [None]
  - EMOTIONAL DISTRESS [None]
  - BLOOD POTASSIUM DECREASED [None]
  - JOINT RANGE OF MOTION DECREASED [None]
  - PARKINSONISM [None]
  - RENAL FAILURE CHRONIC [None]
  - HYPERTENSION [None]
  - ACTIVITIES OF DAILY LIVING IMPAIRED [None]
  - PAIN [None]
  - DYSPHAGIA [None]
  - TONGUE BITING [None]
  - SPEECH DISORDER [None]
  - DYSGRAPHIA [None]
  - MASKED FACIES [None]
  - OSTEOARTHRITIS [None]
  - RHINITIS ALLERGIC [None]
  - DIZZINESS [None]
  - TARDIVE DYSKINESIA [None]
  - ECONOMIC PROBLEM [None]
  - DEFORMITY [None]
  - INTENTIONAL DRUG MISUSE [None]
  - CHEST PAIN [None]
  - NO THERAPEUTIC RESPONSE [None]
  - BALANCE DISORDER [None]
  - DYSPHONIA [None]
  - HYPERLIPIDAEMIA [None]
  - EAR DISCOMFORT [None]
  - PAIN IN JAW [None]
  - WEIGHT DECREASED [None]
  - COMPULSIVE LIP BITING [None]
  - DRY MOUTH [None]
  - CONTRAINDICATION TO MEDICAL TREATMENT [None]
  - EATING DISORDER [None]
  - SOMNOLENCE [None]
  - TYPE 2 DIABETES MELLITUS [None]
  - DYSTONIA [None]
  - BRUXISM [None]
  - RHINORRHOEA [None]
  - MEMORY IMPAIRMENT [None]
  - INAPPROPRIATE SCHEDULE OF DRUG ADMINISTRATION [None]
  - TREATMENT NONCOMPLIANCE [None]
  - MULTIPLE INJURIES [None]
  - NAUSEA [None]
  - OCCIPITAL NEURALGIA [None]
  - BLOOD SODIUM DECREASED [None]
  - PSYCHOMOTOR RETARDATION [None]
  - HYPERTONIA [None]
  - COGWHEEL RIGIDITY [None]
  - HYPOAESTHESIA [None]
  - BRADYCARDIA [None]
